FAERS Safety Report 8940852 (Version 2)
Quarter: 2012Q4

REPORT INFORMATION
  Report Type: 
  Country: RU (occurrence: RU)
  Receive Date: 20121203
  Receipt Date: 20121227
  Transmission Date: 20130627
  Serious: Yes (Death, Life-Threatening)
  Sender: FDA-Public Use
  Company Number: RU-ASTRAZENECA-2012SE90212

PATIENT
  Sex: Female

DRUGS (2)
  1. BRILINTA [Suspect]
     Indication: ACUTE CORONARY SYNDROME
     Route: 048
     Dates: start: 20121128
  2. DRUGS (NOT SPECIFIED) [Concomitant]
     Indication: ANAEMIA

REACTIONS (4)
  - Coronary artery thrombosis [Recovered/Resolved]
  - Circulatory collapse [Fatal]
  - Pericardial haemorrhage [Fatal]
  - Pain [Fatal]
